FAERS Safety Report 7036102-3 (Version None)
Quarter: 2010Q4

REPORT INFORMATION
  Report Type: 
  Country: None (occurrence: None)
  Receive Date: 20101008
  Receipt Date: 20091012
  Transmission Date: 20110411
  Serious: No
  Sender: FDA-Public Use
  Company Number: US-BRISTOL-MYERS SQUIBB COMPANY-14813927

PATIENT
  Age: 71 Year
  Sex: Female
  Weight: 57 kg

DRUGS (4)
  1. AVAPRO [Suspect]
     Indication: HYPERTENSION
     Dosage: DOSE DECREASED TO HALF A TABLET
     Dates: start: 20090101
  2. KLONOPIN [Concomitant]
  3. AMBIEN [Concomitant]
  4. ACIPHEX [Concomitant]

REACTIONS (2)
  - DYSPEPSIA [None]
  - FATIGUE [None]
